FAERS Safety Report 6377764-3 (Version None)
Quarter: 2009Q3

REPORT INFORMATION
  Report Type: 
  Country: None (occurrence: None)
  Receive Date: 20090925
  Receipt Date: 20090908
  Transmission Date: 20100115
  Serious: Yes (Other)
  Sender: FDA-Public Use
  Company Number: CHPA2009US18732

PATIENT
  Sex: Female
  Weight: 57.143 kg

DRUGS (8)
  1. MAALOX UNKNOWN (NCH) [Suspect]
     Indication: DYSPEPSIA
     Dosage: UNK, PRN, BUT USED REGULARLY
     Route: 048
     Dates: start: 19880101, end: 20080101
  2. MAALOX UNKNOWN (NCH) [Suspect]
     Indication: FLATULENCE
  3. ZESTRIL [Concomitant]
     Indication: HYPERTENSION
     Dosage: 30 MG, QD
     Route: 048
     Dates: start: 20040101
  4. MAXZIDE [Concomitant]
     Indication: JOINT SWELLING
     Dosage: 25 MG, QD
     Route: 048
     Dates: start: 19940101
  5. ATENOLOL [Concomitant]
     Indication: ATRIAL FIBRILLATION
     Dosage: 25 MG, QD
     Route: 048
     Dates: start: 19790101
  6. ASPIRIN [Concomitant]
     Indication: PROPHYLAXIS
     Dosage: 81 MG, QD
     Route: 048
     Dates: start: 19990101
  7. VITAMIN B-12 [Concomitant]
     Dosage: 500 MG, QD
     Route: 048
     Dates: start: 20050101
  8. VITAMIN B-12 [Concomitant]
     Dosage: UNK, ONE INJECTION EACH MONTH
     Dates: start: 20050101

REACTIONS (7)
  - BLOOD CREATINE INCREASED [None]
  - BLOOD UREA INCREASED [None]
  - HYPERTENSION [None]
  - INTENTIONAL DRUG MISUSE [None]
  - JOINT SWELLING [None]
  - OSTEOPOROSIS [None]
  - PLATELET COUNT DECREASED [None]
